FAERS Safety Report 6355688-5 (Version None)
Quarter: 2009Q3

REPORT INFORMATION
  Report Type: 
  Country: None (occurrence: None)
  Receive Date: 20090910
  Receipt Date: 20090902
  Transmission Date: 20100115
  Serious: Yes (Disabling)
  Sender: FDA-Public Use
  Company Number: 2009AL005784

PATIENT
  Age: 86 Year
  Sex: Female

DRUGS (5)
  1. VENLAFAXINE HYDROCHLORIDE TABLETS, 100MG (ATLLC) [Suspect]
     Indication: DEPRESSION
     Dosage: 150 MG;PO
     Route: 048
     Dates: start: 20081218, end: 20090723
  2. FENTANYL TRANSDERMAL SYSTEM, 50 MCG/HOUR (ASALLC) [Suspect]
     Dosage: 37 UG;BIW;TDER
     Route: 062
     Dates: start: 20090519
  3. OMEPRAZOLE [Concomitant]
  4. LORAZEPAM [Concomitant]
  5. OLANZAPINE [Concomitant]

REACTIONS (1)
  - SEROTONIN SYNDROME [None]
